FAERS Safety Report 7233833-7 (Version None)
Quarter: 2011Q1

REPORT INFORMATION
  Report Type: 
  Country: None (occurrence: None)
  Receive Date: 20110119
  Receipt Date: 20110110
  Transmission Date: 20110831
  Serious: Yes (Hospitalization)
  Sender: FDA-Public Use
  Company Number: BR-MEDIMMUNE-MEDI-0012231

PATIENT
  Sex: Male
  Weight: 8.8 kg

DRUGS (2)
  1. SYNAGIS [Suspect]
     Indication: PULMONARY ARTERY ATRESIA
  2. SYNAGIS [Suspect]
     Indication: CARDIAC DISORDER
     Route: 030
     Dates: start: 20100528, end: 20100528

REACTIONS (2)
  - PNEUMONIA [None]
  - SEPSIS [None]
